FAERS Safety Report 4503564-2 (Version None)
Quarter: 2004Q4

REPORT INFORMATION
  Report Type: 
  Country: None (occurrence: None)
  Receive Date: 20041112
  Receipt Date: 20041105
  Transmission Date: 20050328
  Serious: Yes (Other)
  Sender: FDA-Public Use
  Company Number: USA-2004-0017544

PATIENT
  Age: 28 Year
  Sex: Female

DRUGS (1)
  1. SENNOSIDES                  (SIMILAR TO ANDA 9-939)(SENNOSIDE A+B) [Suspect]
     Indication: STRESS SYMPTOMS
     Dosage: ORAL
     Route: 048

REACTIONS (4)
  - ALCOHOL USE [None]
  - HEPATITIS [None]
  - MYALGIA [None]
  - REFUSAL OF TREATMENT BY PATIENT [None]
